FAERS Safety Report 14825874 (Version 3)
Quarter: 2019Q2

REPORT INFORMATION
  Report Type: Spontaneous
  Country: US (occurrence: US)
  Receive Date: 20180430
  Receipt Date: 20190508
  Transmission Date: 20190711
  Serious: No
  Sender: FDA-Public Use
  Company Number: US-PFIZER INC-2018170650

PATIENT
  Age: 63 Year
  Sex: Female

DRUGS (1)
  1. EUCRISA [Suspect]
     Active Substance: CRISABOROLE
     Indication: DERMATITIS ATOPIC
     Dosage: UNK, 2X/DAY (APPLY TWICE DAILY TO AFFECTED AREAS ON BODY)
     Route: 061
     Dates: start: 201712

REACTIONS (4)
  - Skin discolouration [Not Recovered/Not Resolved]
  - Pruritus [Recovered/Resolved]
  - Application site erythema [Unknown]
  - Application site pain [Recovered/Resolved]
